FAERS Safety Report 7829839-7 (Version None)
Quarter: 2011Q4

REPORT INFORMATION
  Report Type: 
  Country: None (occurrence: None)
  Receive Date: 20111021
  Receipt Date: 20111014
  Transmission Date: 20120403
  Serious: Yes (Other)
  Sender: FDA-Public Use
  Company Number: IT-AMGEN-ITASP2011053389

PATIENT
  Age: 60 Year
  Sex: Male

DRUGS (1)
  1. NEULASTA [Suspect]
     Indication: IDIOPATHIC NEUTROPENIA
     Dosage: 6 MG, QCYCLE
     Dates: start: 20110814, end: 20110915

REACTIONS (4)
  - CHOKING SENSATION [None]
  - HYPOTENSION [None]
  - HYPERHIDROSIS [None]
  - VOMITING [None]
